FAERS Safety Report 7925931-7 (Version None)
Quarter: 2011Q4

REPORT INFORMATION
  Report Type: 
  Country: None (occurrence: None)
  Receive Date: 20111118
  Receipt Date: 20110414
  Transmission Date: 20120403
  Serious: No
  Sender: FDA-Public Use
  Company Number: US-AMGEN-USASP2011012939

PATIENT
  Age: 52 Year
  Sex: Female
  Weight: 96.145 kg

DRUGS (1)
  1. ENBREL [Suspect]
     Indication: RHEUMATOID ARTHRITIS
     Dosage: 25 MG, 2 TIMES/WK
     Dates: start: 20060901, end: 20110314

REACTIONS (3)
  - INJECTION SITE PAIN [None]
  - SINUSITIS FUNGAL [None]
  - RHINORRHOEA [None]
